FAERS Safety Report 8601651-0 (Version None)
Quarter: 2012Q3

REPORT INFORMATION
  Report Type: 
  Country: None (occurrence: None)
  Receive Date: 20120817
  Receipt Date: 20120810
  Transmission Date: 20120928
  Serious: Yes (Other)
  Sender: FDA-Public Use
  Company Number: US-TEVA-353587USA

PATIENT
  Sex: Female

DRUGS (1)
  1. PROAIR HFA [Suspect]
     Indication: ASTHMA

REACTIONS (5)
  - WHEEZING [None]
  - ASTHMA [None]
  - DYSPNOEA [None]
  - NASOPHARYNGITIS [None]
  - HYPERHIDROSIS [None]
